FAERS Safety Report 16791637 (Version 1)
Quarter: 2019Q3

REPORT INFORMATION
  Report Type: Spontaneous
  Country: NO (occurrence: NO)
  Receive Date: 20190910
  Receipt Date: 20190910
  Transmission Date: 20191005
  Serious: Yes (Hospitalization, Other)
  Sender: FDA-Public Use
  Company Number: NO-BRISTOL-MYERS SQUIBB COMPANY-BMS-2019-086725

PATIENT
  Age: 73 Year
  Sex: Female

DRUGS (2)
  1. KLYX [Suspect]
     Active Substance: DOCUSATE SODIUM
     Indication: CONSTIPATION
     Dosage: 120 MILLILITER AS NEEDED
     Route: 054
     Dates: start: 2019
  2. ELIQUIS [Suspect]
     Active Substance: APIXABAN
     Indication: CEREBROVASCULAR ACCIDENT PROPHYLAXIS
     Dosage: 5 MILLIGRAM X 2
     Route: 048
     Dates: start: 201810

REACTIONS (3)
  - Rectal abscess [Recovering/Resolving]
  - Rectal haemorrhage [Recovering/Resolving]
  - Rectal injury [Recovering/Resolving]

NARRATIVE: CASE EVENT DATE: 201908
